FAERS Safety Report 9313308 (Version 1)
Quarter: 2013Q2

REPORT INFORMATION
  Report Type: Spontaneous
  Country: US (occurrence: US)
  Receive Date: 20130528
  Receipt Date: 20130528
  Transmission Date: 20140414
  Serious: No
  Sender: FDA-Public Use
  Company Number: US-ABBOTT-13P-163-1074888-00

PATIENT
  Age: 88 Year
  Sex: Male
  Weight: 82.63 kg

DRUGS (6)
  1. ANDROGEL [Suspect]
     Indication: BLOOD TESTOSTERONE DECREASED
     Dosage: 6 PUMP ACTUATIONS
     Dates: start: 201301
  2. METOPROLOL [Concomitant]
     Indication: CARDIAC DISORDER
  3. ASPIRIN [Concomitant]
     Indication: PRODUCT USED FOR UNKNOWN INDICATION
     Dosage: HALF TABLET
  4. ALLOPURINOL [Concomitant]
     Indication: PRODUCT USED FOR UNKNOWN INDICATION
  5. FINASTERIDE [Concomitant]
     Indication: PROSTATIC DISORDER
  6. FUROSEMIDE [Concomitant]
     Indication: DIURETIC THERAPY

REACTIONS (2)
  - Device malfunction [Unknown]
  - Malaise [Recovered/Resolved]
